FAERS Safety Report 4736220-6 (Version None)
Quarter: 2005Q3

REPORT INFORMATION
  Report Type: 
  Country: None (occurrence: None)
  Receive Date: 20050808
  Receipt Date: 20050801
  Transmission Date: 20060218
  Serious: Yes (Other)
  Sender: FDA-Public Use
  Company Number: PHFR2005GB02645

PATIENT
  Age: 12 Year
  Sex: Male

DRUGS (2)
  1. RITALIN [Suspect]
     Indication: ATTENTION DEFICIT/HYPERACTIVITY DISORDER
     Dosage: 10 MG, TID
     Route: 048
     Dates: start: 20050728, end: 20050730
  2. FLAXSEED OIL [Concomitant]
     Route: 065

REACTIONS (1)
  - CHEST PAIN [None]
